FAERS Safety Report 18999515 (Version 1)
Quarter: 2021Q1

REPORT INFORMATION
  Report Type: Spontaneous
  Country: DE (occurrence: DE)
  Receive Date: 20210311
  Receipt Date: 20210311
  Transmission Date: 20210420
  Serious: Yes (Other)
  Sender: FDA-Public Use
  Company Number: DE-COLLEGIUM PHARMACEUTICAL, INC.-2021CGM00184

PATIENT
  Sex: Female

DRUGS (2)
  1. NUCYNTA [Suspect]
     Active Substance: TAPENTADOL HYDROCHLORIDE
     Indication: BACK PAIN
     Dosage: 30 ML
     Route: 048
  2. CORTISON [Concomitant]
     Active Substance: CORTISONE ACETATE

REACTIONS (3)
  - Suspected transmission of an infectious agent via product [Unknown]
  - Drug ineffective [Unknown]
  - Recalled product administered [Unknown]
